FAERS Safety Report 9235950 (Version 1)
Quarter: 2013Q2

REPORT INFORMATION
  Report Type: Spontaneous
  Country: SE (occurrence: SE)
  Receive Date: 20130417
  Receipt Date: 20130417
  Transmission Date: 20140414
  Serious: Yes (Disabling)
  Sender: FDA-Public Use
  Company Number: SE-B.I. PHARMACEUTICALS,INC./RIDGEFIELD-2013-SW-00204SW

PATIENT
  Sex: 0

DRUGS (1)
  1. SIFROL TAB [Suspect]
     Indication: PARKINSON^S DISEASE
     Dates: start: 2004

REACTIONS (1)
  - Visual impairment [Unknown]
